FAERS Safety Report 4311683-9 (Version None)
Quarter: 2004Q1

REPORT INFORMATION
  Report Type: 
  Country: None (occurrence: None)
  Receive Date: 20040303
  Receipt Date: 20040303
  Transmission Date: 20041129
  Serious: Yes (Hospitalization)
  Sender: FDA-Public Use
  Company Number: None

PATIENT
  Age: 11 Month
  Sex: Male

DRUGS (1)
  1. AMOXICILLIN/CLAVULANANTE [Suspect]
     Indication: OTITIS MEDIA
     Dates: start: 20031014, end: 20031017

REACTIONS (6)
  - ERYTHEMA [None]
  - MOUTH ULCERATION [None]
  - PYREXIA [None]
  - RASH [None]
  - SKIN LESION [None]
  - TONGUE ULCERATION [None]
